FAERS Safety Report 11824480 (Version 1)
Quarter: 2015Q4

REPORT INFORMATION
  Report Type: Spontaneous
  Country: US (occurrence: US)
  Receive Date: 20151210
  Receipt Date: 20151210
  Transmission Date: 20160305
  Serious: Yes (Life-Threatening)
  Sender: FDA-Public Use
  Company Number: US-MYLANLABS-2015M1043103

PATIENT

DRUGS (1)
  1. EPIPEN [Suspect]
     Active Substance: EPINEPHRINE
     Indication: ANAPHYLACTIC REACTION
     Dosage: 0.3 MG, UNK
     Route: 030
     Dates: start: 20150906, end: 20150906

REACTIONS (1)
  - Drug effect incomplete [Recovered/Resolved]

NARRATIVE: CASE EVENT DATE: 20150906
